FAERS Safety Report 24664715 (Version 1)
Quarter: 2024Q4

REPORT INFORMATION
  Report Type: Report from Study
  Country: MX (occurrence: MX)
  Receive Date: 20241126
  Receipt Date: 20241126
  Transmission Date: 20250115
  Serious: Yes (Other)
  Sender: NOVARTIS
  Company Number: MX-002147023-NVSC2024MX213599

PATIENT
  Sex: Female
  Weight: 55 kg

DRUGS (4)
  1. IMATINIB [Suspect]
     Active Substance: IMATINIB
     Indication: Chronic myeloid leukaemia
     Dosage: 4 (100 MG), QD
     Route: 048
     Dates: start: 2022, end: 202311
  2. IMATINIB [Suspect]
     Active Substance: IMATINIB
     Dosage: UNK-ONGOING
     Route: 065
     Dates: start: 202312
  3. TASIGNA [Suspect]
     Active Substance: NILOTINIB
     Indication: Chronic myeloid leukaemia
     Dosage: 2 (200 MG), BID
     Route: 048
     Dates: start: 202311, end: 202311
  4. TELMISARTAN [Concomitant]
     Active Substance: TELMISARTAN
     Indication: Hypertension
     Dosage: 1 DOSAGE FORM, BID
     Route: 048
     Dates: start: 2019

REACTIONS (5)
  - Hypothyroidism [Not Recovered/Not Resolved]
  - Cardiac disorder [Recovered/Resolved]
  - Eye swelling [Unknown]
  - Expired product administered [Unknown]
  - Swelling [Unknown]

NARRATIVE: CASE EVENT DATE: 20230101
